FAERS Safety Report 4639893-1 (Version None)
Quarter: 2005Q2

REPORT INFORMATION
  Report Type: 
  Country: None (occurrence: None)
  Receive Date: 20050420
  Receipt Date: 20050411
  Transmission Date: 20051028
  Serious: Yes (Hospitalization)
  Sender: FDA-Public Use
  Company Number: PHRM2005FR01302

PATIENT
  Age: 84 Year
  Sex: Male

DRUGS (2)
  1. PROPRANOLOL HYDROCHLORIDE [Suspect]
     Indication: HYPERTENSION
  2. COTAREG [Suspect]
     Indication: HYPERTENSION
     Route: 048

REACTIONS (11)
  - ANTIBODY TEST ABNORMAL [None]
  - C-REACTIVE PROTEIN INCREASED [None]
  - HYPERGAMMAGLOBULINAEMIA [None]
  - HYPERPROTEINAEMIA [None]
  - LYMPHADENOPATHY [None]
  - LYMPHOCYTIC INFILTRATION [None]
  - LYMPHOCYTOSIS [None]
  - PRURIGO [None]
  - PRURITUS [None]
  - RASH PAPULAR [None]
  - SPLENOMEGALY [None]
